FAERS Safety Report 15092239 (Version 1)
Quarter: 2018Q2

REPORT INFORMATION
  Report Type: Spontaneous
  Country: US (occurrence: US)
  Receive Date: 20180629
  Receipt Date: 20180629
  Transmission Date: 20180711
  Serious: Yes (Hospitalization, Other)
  Sender: FDA-Public Use
  Company Number: US-PFIZER INC-2018258929

PATIENT
  Age: 60 Year
  Sex: Male

DRUGS (10)
  1. SINEMET [Concomitant]
     Active Substance: CARBIDOPA\LEVODOPA
     Indication: PARKINSON^S DISEASE
     Dosage: 6 DF, DAILY (CARBIDOPA: 25MG /LEVODOPA: 100 MG) (2 TABLET, 3 IN 1 D)
     Route: 048
  2. PRED FORTE [Concomitant]
     Active Substance: PREDNISOLONE ACETATE
     Indication: IRITIS
  3. PRED FORTE [Concomitant]
     Active Substance: PREDNISOLONE ACETATE
     Indication: OCULAR HYPERAEMIA
     Dosage: 4 GTT, UNK (2 DROP, 2 HR)
     Route: 047
  4. REMICADE [Suspect]
     Active Substance: INFLIXIMAB
     Dosage: UNK
     Route: 042
  5. ORENCIA [Suspect]
     Active Substance: ABATACEPT
     Dosage: UNK
     Route: 042
  6. XELJANZ XR [Suspect]
     Active Substance: TOFACITINIB CITRATE
     Indication: RHEUMATOID ARTHRITIS
     Dosage: 11 MG, UNK
     Route: 048
     Dates: start: 201803
  7. HUMIRA [Suspect]
     Active Substance: ADALIMUMAB
     Indication: RHEUMATOID ARTHRITIS
     Dosage: UNK
     Route: 058
     Dates: start: 201510, end: 201608
  8. PRED FORTE [Concomitant]
     Active Substance: PREDNISOLONE ACETATE
     Indication: EYE SWELLING
  9. METHOTREXATE. [Concomitant]
     Active Substance: METHOTREXATE
     Indication: RHEUMATOID ARTHRITIS
     Dosage: 15 MG, DAILY (2.5 MG, 6 IN 1 D)
     Route: 048
  10. HYDROXYCHLOROQUINE [Concomitant]
     Active Substance: HYDROXYCHLOROQUINE
     Indication: RHEUMATOID ARTHRITIS
     Dosage: 200 MG, 1X/DAY (1 ONCE)
     Route: 048

REACTIONS (4)
  - Rash [Unknown]
  - Pulmonary oedema [Unknown]
  - Pericarditis [Unknown]
  - Parkinson^s disease [Unknown]
